FAERS Safety Report 17534051 (Version 1)
Quarter: 2020Q1

REPORT INFORMATION
  Report Type: Report from Study
  Country: US (occurrence: US)
  Receive Date: 20200312
  Receipt Date: 20200312
  Transmission Date: 20200409
  Serious: No
  Sender: FDA-Public Use
  Company Number: NVSC2020US071611

PATIENT

DRUGS (1)
  1. COSENTYX [Suspect]
     Active Substance: SECUKINUMAB
     Indication: ANKYLOSING SPONDYLITIS
     Dosage: 150 MG, 150MG Q WEEKLY X 5 WEEKS THEN 150MG Q 4 WEEKS
     Route: 058
     Dates: start: 20191115

REACTIONS (1)
  - Drug ineffective [Unknown]
